FAERS Safety Report 4805092-3 (Version None)
Quarter: 2005Q4

REPORT INFORMATION
  Report Type: 
  Country: None (occurrence: None)
  Receive Date: 20051017
  Receipt Date: 20051007
  Transmission Date: 20060501
  Serious: Yes (Hospitalization)
  Sender: FDA-Public Use
  Company Number: 2005-10-0359

PATIENT
  Age: 55 Year
  Sex: Male

DRUGS (10)
  1. ISOSORBIDE MONONITRATE [Suspect]
     Dosage: 60 MG QD ORAL
     Route: 048
  2. RAMIPRIL [Suspect]
     Dosage: 2.5 MG QD ORAL
     Route: 048
  3. ACETYLSALICYLIC ACID ORAL, NOT OTHERWISE SPECIFIED [Suspect]
     Dosage: 75 MG QD
  4. ATORVASTATIN CALCIUM ORAL, NOT OTHERWISE SPECIFIED [Suspect]
     Dosage: 10 MG QD
  5. BENDROFLUMETHIAZIDE [Suspect]
     Dosage: 2.5 MG QD
  6. AMLODIPINE [Suspect]
     Dosage: 5-10 MG QD
  7. PIOGLITAZONE HCL [Suspect]
     Dosage: 15 MG QD
  8. METFORMIN HCL [Suspect]
     Dosage: 850 MG TID
  9. METHYLDOPA [Suspect]
     Dosage: 250 MG TID
  10. HYDRALAZINE HCL [Suspect]
     Dosage: 50 MG BID

REACTIONS (9)
  - ATRIAL FIBRILLATION [None]
  - CEREBRAL HAEMATOMA [None]
  - DYSARTHRIA [None]
  - HAEMORRHAGIC STROKE [None]
  - HEMIANOPIA HOMONYMOUS [None]
  - HEMIPARESIS [None]
  - HYPERTENSION [None]
  - SOMNOLENCE [None]
  - VENTRICULAR HYPERTROPHY [None]
